FAERS Safety Report 7546058-2 (Version None)
Quarter: 2011Q2

REPORT INFORMATION
  Report Type: 
  Country: None (occurrence: None)
  Receive Date: 20110614
  Receipt Date: 20110614
  Transmission Date: 20111010
  Serious: Yes (Hospitalization)
  Sender: FDA-Public Use
  Company Number: GB-TEVA-256822ISR

PATIENT
  Age: 57 Year
  Sex: Female

DRUGS (6)
  1. CLARITHROMYCIN [Suspect]
     Indication: PNEUMONIA
  2. AMOXICILLIN [Concomitant]
     Indication: PNEUMONIA
  3. TACROLIMUS [Interacting]
     Dosage: 1MG/0.5MG
  4. PREDNISOLONE [Concomitant]
  5. TACROLIMUS [Interacting]
     Dosage: 6 MILLIGRAM;
  6. AZATHIOPRINE [Concomitant]

REACTIONS (2)
  - DRUG INTERACTION [None]
  - HAEMOLYTIC URAEMIC SYNDROME [None]
